FAERS Safety Report 7387126-8 (Version None)
Quarter: 2011Q1

REPORT INFORMATION
  Report Type: 
  Country: None (occurrence: None)
  Receive Date: 20110331
  Receipt Date: 20110321
  Transmission Date: 20110831
  Serious: Yes (Other)
  Sender: FDA-Public Use
  Company Number: A0885985B

PATIENT
  Age: 31 Year
  Sex: Female

DRUGS (15)
  1. LOXEN [Concomitant]
     Route: 065
  2. ZIAGEN [Suspect]
     Indication: ANTIVIRAL TREATMENT
     Route: 065
     Dates: end: 20091001
  3. SUSTIVA [Suspect]
     Indication: ANTIVIRAL TREATMENT
     Route: 065
     Dates: end: 20091001
  4. REYATAZ [Suspect]
     Indication: ANTIVIRAL TREATMENT
     Route: 065
     Dates: start: 20091119
  5. HIV ANTIVIRAL AGENTS UNSPECIFIED [Concomitant]
     Indication: ANTIVIRAL TREATMENT
     Route: 065
     Dates: start: 20100406, end: 20100406
  6. CLAMOXYL [Concomitant]
     Route: 065
  7. RETROVIR [Concomitant]
     Indication: ANTIVIRAL TREATMENT
     Route: 064
     Dates: start: 20100406, end: 20100406
  8. CONCURRENT MEDICATIONS [Concomitant]
     Route: 065
  9. CELESTONE [Concomitant]
     Route: 065
  10. VIREAD [Suspect]
     Indication: ANTIVIRAL TREATMENT
     Route: 065
     Dates: start: 20050101, end: 20091001
  11. VITAMIN D [Concomitant]
     Route: 065
  12. NORVIR [Suspect]
     Indication: ANTIVIRAL TREATMENT
     Route: 065
     Dates: start: 20091119
  13. ZIAGEN [Suspect]
     Route: 065
     Dates: start: 20091119
  14. VIREAD [Suspect]
     Route: 065
     Dates: start: 20091119
  15. SPASFON [Concomitant]
     Route: 065

REACTIONS (7)
  - BLOOD UREA DECREASED [None]
  - ALBUMINURIA [None]
  - DRUG EXPOSURE DURING PREGNANCY [None]
  - ANAEMIA [None]
  - BLOOD ALKALINE PHOSPHATASE INCREASED [None]
  - PROTEINURIA [None]
  - PREMATURE LABOUR [None]
